FAERS Safety Report 20233204 (Version 1)
Quarter: 2021Q4

REPORT INFORMATION
  Report Type: Spontaneous
  Country: US (occurrence: None)
  Receive Date: 20211226
  Receipt Date: 20211226
  Transmission Date: 20220303
  Serious: Yes (Life-Threatening)
  Sender: FDA-Public Use
  Company Number: None

PATIENT
  Age: 33 Year
  Sex: Female
  Weight: 69.75 kg

DRUGS (1)
  1. AVIANE [Suspect]
     Active Substance: ETHINYL ESTRADIOL\LEVONORGESTREL
     Indication: Menstrual cycle management
     Dosage: OTHER QUANTITY : 28 CAPSULE(S);?FREQUENCY : DAILY;?
     Route: 048

REACTIONS (9)
  - Panic attack [None]
  - Anxiety [None]
  - Insomnia [None]
  - Paranoia [None]
  - Agoraphobia [None]
  - Illness anxiety disorder [None]
  - Depression [None]
  - Suicidal ideation [None]
  - Weight decreased [None]

NARRATIVE: CASE EVENT DATE: 20201010
